FAERS Safety Report 7306540 (Version 4)
Quarter: 2016Q4

REPORT INFORMATION
  Report Type: Spontaneous
  Country: US (occurrence: US)
  Receive Date: 20100305
  Receipt Date: 20161116
  Transmission Date: 20170207
  Serious: Yes (Hospitalization, Other)
  Sender: FDA-Public Use
  Company Number: US-BAYER-201014691NA

PATIENT
  Age: 26 Year
  Sex: Female
  Weight: 59.86 kg

DRUGS (1)
  1. MIRENA [Suspect]
     Active Substance: LEVONORGESTREL
     Indication: CONTRACEPTION
     Dosage: REMOVED BY LAPAROSCOPIC SURGERY
     Route: 015
     Dates: start: 200904, end: 20100218

REACTIONS (10)
  - Menorrhagia [Recovered/Resolved]
  - Abdominal pain lower [None]
  - Device dislocation [Recovered/Resolved]
  - Oligomenorrhoea [Unknown]
  - Weight decreased [Not Recovered/Not Resolved]
  - Dysmenorrhoea [Recovered/Resolved]
  - Foreign body [None]
  - Ovarian cyst [None]
  - Procedural pain [None]
  - Uterine disorder [None]

NARRATIVE: CASE EVENT DATE: 200904
